FAERS Safety Report 8478840-1 (Version None)
Quarter: 2012Q2

REPORT INFORMATION
  Report Type: 
  Country: None (occurrence: None)
  Receive Date: 20120629
  Receipt Date: 20120621
  Transmission Date: 20120825
  Serious: Yes (Death, Hospitalization, Other)
  Sender: FDA-Public Use
  Company Number: JP-ROCHE-1074103

PATIENT
  Sex: Male
  Weight: 40 kg

DRUGS (13)
  1. JANUVIA [Concomitant]
     Indication: DIABETES MELLITUS
     Route: 048
     Dates: start: 20110408, end: 20120501
  2. REZALTAS [Concomitant]
     Indication: HYPERTENSION
     Route: 048
     Dates: start: 20110704, end: 20120501
  3. MUCOSOLVAN L [Concomitant]
     Indication: BRONCHITIS CHRONIC
     Route: 048
     Dates: start: 20070105, end: 20120501
  4. MIRCERA [Suspect]
     Route: 058
     Dates: start: 20111025, end: 20120411
  5. ASPIRIN [Concomitant]
     Indication: ANGINA PECTORIS
     Route: 048
     Dates: start: 20070105, end: 20120501
  6. DOXAZOSIN MESYLATE [Concomitant]
     Indication: HYPERTENSION
     Route: 048
     Dates: start: 20110912, end: 20120501
  7. MIRCERA [Suspect]
     Indication: NEPHROGENIC ANAEMIA
     Route: 058
     Dates: start: 20110818, end: 20110927
  8. LENDORMIN D [Concomitant]
     Indication: INSOMNIA
     Route: 048
     Dates: start: 20071129, end: 20120501
  9. AMARYL [Concomitant]
     Indication: DIABETES MELLITUS
     Route: 048
     Dates: start: 20070105, end: 20120501
  10. AMLODIPINE BESILATE/TELMISARTAN [Concomitant]
     Indication: HYPERTENSION
     Dosage: DRUG REPORTED  AS MICAMLO
     Route: 048
     Dates: start: 20110927, end: 20120501
  11. MICARDIS [Concomitant]
     Indication: HYPERTENSION
     Route: 048
     Dates: start: 20070105, end: 20110926
  12. ACTOS [Concomitant]
     Indication: DIABETES MELLITUS
     Route: 048
     Dates: start: 20081121, end: 20120501
  13. PROTECADIN [Concomitant]
     Indication: GASTRIC ULCER
     Route: 048
     Dates: start: 20090903, end: 20120501

REACTIONS (3)
  - RENAL FAILURE CHRONIC [None]
  - NASOPHARYNGITIS [None]
  - CARDIAC FAILURE [None]
